FAERS Safety Report 12994489 (Version 1)
Quarter: 2016Q4

REPORT INFORMATION
  Report Type: Spontaneous
  Country: PT (occurrence: PT)
  Receive Date: 20161202
  Receipt Date: 20161202
  Transmission Date: 20170207
  Serious: Yes (Other)
  Sender: FDA-Public Use
  Company Number: PT-TEVA-715047ISR

PATIENT
  Age: 42 Year
  Sex: Male
  Weight: 98 kg

DRUGS (1)
  1. ALUPORINOL RATIOPHARM [Suspect]
     Active Substance: ALLOPURINOL
     Indication: BLOOD URIC ACID INCREASED
     Dosage: DAILY DOSE NOT SPECIFIED
     Route: 048
     Dates: start: 20161007, end: 20161104

REACTIONS (6)
  - Product substitution issue [Unknown]
  - Blood pressure systolic increased [None]
  - Pain [Recovered/Resolved]
  - Hypertension [Recovered/Resolved]
  - Pyrexia [Recovered/Resolved]
  - Heart rate increased [Recovered/Resolved]

NARRATIVE: CASE EVENT DATE: 20161007
